FAERS Safety Report 5898706-0 (Version None)
Quarter: 2008Q3

REPORT INFORMATION
  Report Type: 
  Country: None (occurrence: None)
  Receive Date: 20080925
  Receipt Date: 20080506
  Transmission Date: 20090109
  Serious: No
  Sender: FDA-Public Use
  Company Number: A0724557A

PATIENT
  Age: 62 Year
  Sex: Female

DRUGS (7)
  1. WELLBUTRIN XL [Suspect]
     Indication: DEPRESSION
     Dosage: 150MG PER DAY
     Route: 048
     Dates: start: 20080422
  2. DETROL LA [Concomitant]
  3. TRAMADOL HCL [Concomitant]
  4. COZAAR [Concomitant]
  5. PANTOPRAZOLE SODIUM [Concomitant]
  6. LEVOTHYROXINE SODIUM [Concomitant]
  7. METOPROLOL TARTRATE [Concomitant]

REACTIONS (1)
  - MEDICATION RESIDUE [None]
